FAERS Safety Report 25771347 (Version 1)
Quarter: 2025Q3

REPORT INFORMATION
  Report Type: Spontaneous
  Country: US (occurrence: US)
  Receive Date: 20250908
  Receipt Date: 20250908
  Transmission Date: 20251021
  Serious: No
  Sender: Onesource Specialty Pharma
  Company Number: US-STRIDES ARCOLAB LIMITED-2024-ST-001772

PATIENT
  Age: 58 Year
  Sex: Male

DRUGS (5)
  1. KETOROLAC [Suspect]
     Active Substance: KETOROLAC TROMETHAMINE
     Indication: Chest pain
     Route: 042
  2. FENTANYL [Suspect]
     Active Substance: FENTANYL
     Indication: Chest pain
     Route: 042
  3. FENTANYL [Suspect]
     Active Substance: FENTANYL
     Route: 065
  4. HYDROMORPHONE [Suspect]
     Active Substance: HYDROMORPHONE
     Indication: Chest pain
     Route: 042
  5. ACETAMINOPHEN [Suspect]
     Active Substance: ACETAMINOPHEN
     Indication: Chest pain
     Route: 048

REACTIONS (1)
  - Drug ineffective [Unknown]
